FAERS Safety Report 6570736-5 (Version None)
Quarter: 2010Q1

REPORT INFORMATION
  Report Type: 
  Country: None (occurrence: None)
  Receive Date: 20100204
  Receipt Date: 20100129
  Transmission Date: 20100710
  Serious: Yes (Other)
  Sender: FDA-Public Use
  Company Number: B0630167A

PATIENT
  Age: 44 Year
  Sex: Male
  Weight: 69 kg

DRUGS (1)
  1. ZIAGEN [Suspect]
     Indication: HIV INFECTION
     Dosage: 600MG PER DAY
     Route: 048
     Dates: start: 20090715, end: 20091103

REACTIONS (8)
  - CHEST DISCOMFORT [None]
  - COUGH [None]
  - DIZZINESS [None]
  - DRUG RASH WITH EOSINOPHILIA AND SYSTEMIC SYMPTOMS [None]
  - DYSAESTHESIA [None]
  - HEADACHE [None]
  - MUSCLE SPASMS [None]
  - OEDEMA PERIPHERAL [None]
